FAERS Safety Report 6274269-5 (Version None)
Quarter: 2009Q3

REPORT INFORMATION
  Report Type: 
  Country: None (occurrence: None)
  Receive Date: 20090720
  Receipt Date: 20090707
  Transmission Date: 20100115
  Serious: Yes (Hospitalization)
  Sender: FDA-Public Use
  Company Number: US-ROCHE-635394

PATIENT
  Sex: Male

DRUGS (16)
  1. PEG-INTERFERON ALFA 2A (RO 25-8310) [Suspect]
     Indication: HEPATITIS C
     Route: 058
     Dates: start: 20081217, end: 20090513
  2. RIBAVIRIN [Suspect]
     Indication: HEPATITIS C
     Route: 048
     Dates: start: 20081217, end: 20090515
  3. VX-950 [Suspect]
     Indication: HEPATITIS C
     Route: 048
     Dates: start: 20081217, end: 20090203
  4. GLUCOPHAGE [Concomitant]
     Indication: DIABETES MELLITUS
     Dates: start: 19960101
  5. GLIPIZIDE [Concomitant]
     Indication: DIABETES MELLITUS
     Dates: start: 19960101
  6. VITAMIN B COMPLEX CAP [Concomitant]
     Dates: start: 19950101
  7. VITAMIN B-12 [Concomitant]
     Dates: start: 20030101
  8. PRILOSEC [Concomitant]
     Dates: start: 20030101
  9. LEVSIN [Concomitant]
     Dates: start: 20060101
  10. QUININE [Concomitant]
     Dates: start: 20020101
  11. TYLENOL (CAPLET) [Concomitant]
     Dates: start: 20081223
  12. ATARAX [Concomitant]
     Indication: PRURITUS
     Dates: start: 20090128
  13. TRIAMCINOLONE [Concomitant]
     Indication: RASH
     Dates: start: 20090203
  14. PHENERGAN [Concomitant]
     Indication: NAUSEA
     Dates: start: 20090312
  15. REMERON [Concomitant]
     Indication: DEPRESSION
     Dosage: OTHER INDICATION: INSOMNIA
     Dates: start: 20090408
  16. VISTARIL [Concomitant]
     Indication: NAUSEA
     Dates: start: 20090408

REACTIONS (3)
  - DEEP VEIN THROMBOSIS [None]
  - PRESYNCOPE [None]
  - PULMONARY EMBOLISM [None]
